FAERS Safety Report 5495622-3 (Version None)
Quarter: 2007Q4

REPORT INFORMATION
  Report Type: 
  Country: None (occurrence: None)
  Receive Date: 20071018
  Receipt Date: 20070109
  Transmission Date: 20080405
  Serious: Yes (Other)
  Sender: FDA-Public Use
  Company Number: 2006063734

PATIENT
  Age: 52 Year
  Sex: Female

DRUGS (3)
  1. NEURONTIN [Suspect]
     Indication: ANXIETY
     Dates: start: 20040301
  2. NEURONTIN [Suspect]
     Indication: BIPOLAR DISORDER
     Dates: start: 20040301
  3. NEURONTIN [Suspect]
     Indication: DEPRESSION
     Dates: start: 20040301

REACTIONS (3)
  - DRUG INEFFECTIVE [None]
  - INTENTIONAL OVERDOSE [None]
  - SUICIDE ATTEMPT [None]
